FAERS Safety Report 4262982-0 (Version None)
Quarter: 2004Q1

REPORT INFORMATION
  Report Type: 
  Country: None (occurrence: None)
  Receive Date: 20040102
  Receipt Date: 20040102
  Transmission Date: 20041129
  Serious: Yes (Other)
  Sender: FDA-Public Use
  Company Number: None

PATIENT
  Sex: Male
  Weight: 87 kg

DRUGS (3)
  1. ZOSYN [Suspect]
     Indication: MENINGITIS
     Dosage: 4.5 G IV Q 6 H, 4 D
     Route: 042
  2. LISINOPRIL [Concomitant]
  3. VANCOMYCIN [Concomitant]

REACTIONS (2)
  - BLOOD CREATININE INCREASED [None]
  - EOSINOPHILS URINE [None]
